FAERS Safety Report 9189783 (Version 1)
Quarter: 2013Q1

REPORT INFORMATION
  Report Type: Spontaneous
  Country: FR (occurrence: FR)
  Receive Date: 20130326
  Receipt Date: 20130326
  Transmission Date: 20140127
  Serious: Yes (Hospitalization)
  Sender: FDA-Public Use
  Company Number: FR-PFIZER INC-2013093986

PATIENT
  Age: 73 Year
  Sex: Female

DRUGS (4)
  1. REVATIO [Suspect]
     Dosage: 20 MG, 3X/DAY
     Dates: start: 201002
  2. TRACLEER [Suspect]
     Dosage: 125 MG, 2X/DAY
     Route: 048
     Dates: start: 201002
  3. LASILIX [Suspect]
     Dosage: 1 TABLET, DAILY
     Route: 048
     Dates: start: 201012
  4. PREVISCAN [Suspect]
     Dosage: 1 TABLET, DAILY
     Dates: start: 201002

REACTIONS (1)
  - Thrombocytopenia [Unknown]
